FAERS Safety Report 5114540-3 (Version None)
Quarter: 2006Q3

REPORT INFORMATION
  Report Type: 
  Country: None (occurrence: None)
  Receive Date: 20060922
  Receipt Date: 20060922
  Transmission Date: 20061208
  Serious: Yes (Life-Threatening, Disabling)
  Sender: FDA-Public Use
  Company Number: None

PATIENT
  Age: 50 Year
  Sex: Male
  Weight: 94.7 kg

DRUGS (9)
  1. HEPARIN [Suspect]
     Indication: PULMONARY EMBOLISM
     Dosage: 7800U   TWICE    IV BOLUS
     Route: 040
     Dates: start: 20060901
  2. HEPARIN [Suspect]
     Indication: PULMONARY EMBOLISM
     Dosage: 7800U   TWICE    IV BOLUS
     Route: 040
     Dates: start: 20060902
  3. HEPARIN [Suspect]
     Indication: PULMONARY EMBOLISM
     Dosage: 25000U/DEX 500ML     36ML/HR;  1 BAG    IV DRIP
     Route: 041
     Dates: start: 20060902
  4. IMMUNE GLOBULIN INTRAVENOUS (HUMAN) [Concomitant]
  5. PROPOFOL [Concomitant]
  6. PANTOPRAZOLE SODIUM [Concomitant]
  7. ZOSYN [Concomitant]
  8. VANCOMYCIN [Concomitant]
  9. PHYTONADIONE [Concomitant]

REACTIONS (2)
  - ANTIBODY TEST POSITIVE [None]
  - HEPARIN-INDUCED THROMBOCYTOPENIA TEST [None]
